FAERS Safety Report 6123994-5 (Version None)
Quarter: 2009Q1

REPORT INFORMATION
  Report Type: 
  Country: None (occurrence: None)
  Receive Date: 20090317
  Receipt Date: 20090304
  Transmission Date: 20090719
  Serious: Yes (Death, Other)
  Sender: FDA-Public Use
  Company Number: 2009US000655

PATIENT

DRUGS (3)
  1. PROGRAF [Suspect]
     Indication: RENAL TRANSPLANT
     Dosage: ORAL
     Route: 048
  2. CELLCEPT [Concomitant]
  3. PREDNISONE TAB [Concomitant]

REACTIONS (2)
  - SEPSIS [None]
  - URINARY TRACT INFECTION [None]
